FAERS Safety Report 5650076-9 (Version None)
Quarter: 2008Q1

REPORT INFORMATION
  Report Type: 
  Country: None (occurrence: None)
  Receive Date: 20080303
  Receipt Date: 20080219
  Transmission Date: 20080703
  Serious: Yes (Death)
  Sender: FDA-Public Use
  Company Number: A-US2004-04266

PATIENT
  Age: 66 Year
  Sex: Female
  Weight: 63.5 kg

DRUGS (6)
  1. TRACLEER [Suspect]
     Indication: PULMONARY HYPERTENSION
     Dosage: 125 MG, BID, ORAL; 62.5 MG, BID, ORAL; 250 MG. BID, ORAL
     Route: 048
     Dates: start: 20000301, end: 20000401
  2. TRACLEER [Suspect]
     Indication: PULMONARY HYPERTENSION
     Dosage: 125 MG, BID, ORAL; 62.5 MG, BID, ORAL; 250 MG. BID, ORAL
     Route: 048
     Dates: start: 20000401, end: 20050701
  3. TRACLEER [Suspect]
     Indication: PULMONARY HYPERTENSION
     Dosage: 125 MG, BID, ORAL; 62.5 MG, BID, ORAL; 250 MG. BID, ORAL
     Route: 048
     Dates: start: 20050701
  4. SILDENAFIL CITRATE [Concomitant]
  5. NIFEDIPINE [Concomitant]
  6. ALDACTONE [Concomitant]

REACTIONS (4)
  - CONSTIPATION [None]
  - GASTROINTESTINAL DISORDER [None]
  - MALNUTRITION [None]
  - SCLERODERMA [None]
